FAERS Safety Report 9034710 (Version 2)
Quarter: 2013Q1

REPORT INFORMATION
  Report Type: Spontaneous
  Country: US (occurrence: US)
  Receive Date: 20130128
  Receipt Date: 20130315
  Transmission Date: 20140127
  Serious: Yes (Hospitalization)
  Sender: FDA-Public Use
  Company Number: US-GLAXOSMITHKLINE-B0862250A

PATIENT
  Age: 25 Year
  Sex: Female

DRUGS (6)
  1. LETAIRIS [Suspect]
     Indication: PULMONARY ARTERIAL HYPERTENSION
     Dosage: 5MG PER DAY
     Route: 048
     Dates: start: 201210, end: 201301
  2. ADCIRCA [Suspect]
     Indication: PRODUCT USED FOR UNKNOWN INDICATION
  3. EPOPROSTENOL [Suspect]
     Indication: PRODUCT USED FOR UNKNOWN INDICATION
  4. TADALAFIL [Concomitant]
     Indication: PULMONARY HYPERTENSION
     Route: 048
     Dates: start: 201210
  5. LASIX [Concomitant]
     Indication: PULMONARY HYPERTENSION
     Route: 048
     Dates: start: 201210, end: 201301
  6. SPIRONOLACTONE [Concomitant]
     Indication: PULMONARY HYPERTENSION
     Route: 048
     Dates: start: 201210

REACTIONS (2)
  - Fluid retention [Recovering/Resolving]
  - Left ventricular failure [Recovering/Resolving]
